FAERS Safety Report 4266745-1 (Version None)
Quarter: 2004Q1

REPORT INFORMATION
  Report Type: 
  Country: None (occurrence: None)
  Receive Date: 20040108
  Receipt Date: 20040105
  Transmission Date: 20041129
  Serious: Yes (Hospitalization)
  Sender: FDA-Public Use
  Company Number: FR-GLAXOSMITHKLINE-B0318977A

PATIENT
  Age: 48 Year
  Sex: Female

DRUGS (1)
  1. AUGMENTIN '125' [Suspect]
     Indication: LYMPHADENOPATHY
     Dosage: 3G PER DAY
     Route: 048
     Dates: start: 20030528, end: 20030530

REACTIONS (9)
  - CYTOLYTIC HEPATITIS [None]
  - DIZZINESS [None]
  - INFLAMMATION [None]
  - LYMPHADENOPATHY [None]
  - LYMPHOPENIA [None]
  - MONONUCLEOSIS SYNDROME [None]
  - RASH MACULO-PAPULAR [None]
  - TOXIC SKIN ERUPTION [None]
  - VIRAL INFECTION [None]
